FAERS Safety Report 12764367 (Version 1)
Quarter: 2016Q3

REPORT INFORMATION
  Report Type: Spontaneous
  Country: US (occurrence: US)
  Receive Date: 20160920
  Receipt Date: 20160920
  Transmission Date: 20161109
  Serious: Yes (Other)
  Sender: FDA-Public Use
  Company Number: US-PRINSTON PHARMACEUTICAL INC.-2016PRN00187

PATIENT
  Age: 23 Year
  Sex: Female

DRUGS (2)
  1. BUPROPION HYDROCHLORIDE. [Suspect]
     Active Substance: BUPROPION HYDROCHLORIDE
     Indication: SMOKING CESSATION THERAPY
     Dosage: 1 TABLETS, 1X/DAY
     Dates: start: 20160707, end: 20160709
  2. BUPROPION HYDROCHLORIDE. [Suspect]
     Active Substance: BUPROPION HYDROCHLORIDE
     Dosage: 2 TABLETS, 2X/DAY
     Dates: start: 20160710

REACTIONS (8)
  - Lip swelling [Unknown]
  - Hypersensitivity [Unknown]
  - Pruritus [Unknown]
  - Rash macular [Unknown]
  - Urticaria [Unknown]
  - Swelling face [Unknown]
  - Eye swelling [Unknown]
  - Swollen tongue [Unknown]

NARRATIVE: CASE EVENT DATE: 20160719
